FAERS Safety Report 17099292 (Version 2)
Quarter: 2020Q1

REPORT INFORMATION
  Report Type: Spontaneous
  Country: US (occurrence: US)
  Receive Date: 20191202
  Receipt Date: 20200124
  Transmission Date: 20200409
  Serious: No
  Sender: FDA-Public Use
  Company Number: US-PFIZER INC-2018391591

PATIENT
  Age: 58 Year
  Sex: Female
  Weight: 70.76 kg

DRUGS (2)
  1. LYRICA [Suspect]
     Active Substance: PREGABALIN
     Indication: OSTEOARTHRITIS
     Dosage: 50 MG, 1X/DAY
     Route: 048
     Dates: start: 201902, end: 201903
  2. LYRICA [Suspect]
     Active Substance: PREGABALIN
     Indication: BURNING MOUTH SYNDROME

REACTIONS (2)
  - Drug ineffective for unapproved indication [Unknown]
  - Off label use [Unknown]

NARRATIVE: CASE EVENT DATE: 201902
